FAERS Safety Report 8470709-1 (Version None)
Quarter: 2012Q2

REPORT INFORMATION
  Report Type: 
  Country: None (occurrence: None)
  Receive Date: 20120627
  Receipt Date: 20120622
  Transmission Date: 20120825
  Serious: Yes (Other)
  Sender: FDA-Public Use
  Company Number: US-PFIZER INC-2012151097

PATIENT
  Sex: Male
  Weight: 68.027 kg

DRUGS (3)
  1. LYRICA [Suspect]
     Dosage: UNK
  2. FLOMAX [Concomitant]
     Indication: PROSTATOMEGALY
     Dosage: UNK
  3. PROSCAR [Concomitant]
     Indication: PROSTATOMEGALY
     Dosage: UNK

REACTIONS (1)
  - HYPERTENSION [None]
